FAERS Safety Report 16385020 (Version 1)
Quarter: 2019Q2

REPORT INFORMATION
  Report Type: Report from Study
  Country: FR (occurrence: FR)
  Receive Date: 20190603
  Receipt Date: 20190603
  Transmission Date: 20190711
  Serious: Yes (Hospitalization, Disabling, Other)
  Sender: FDA-Public Use
  Company Number: FR-PFIZER INC-2019235857

PATIENT
  Age: 45 Year
  Sex: Male
  Weight: 85 kg

DRUGS (2)
  1. LORLATINIB [Suspect]
     Active Substance: LORLATINIB
     Indication: LUNG ADENOCARCINOMA
     Dosage: 100 MG, DAILY
     Route: 048
     Dates: start: 20180925, end: 20190513
  2. INNOHEP [Concomitant]
     Active Substance: TINZAPARIN SODIUM
     Indication: EMBOLISM
     Dosage: 16000 IU, 1X/DAY
     Route: 058
     Dates: start: 201801

REACTIONS (5)
  - Fall [Unknown]
  - Foot fracture [Unknown]
  - Psychotic disorder [Not Recovered/Not Resolved]
  - Lumbar vertebral fracture [Unknown]
  - Hallucination [Unknown]

NARRATIVE: CASE EVENT DATE: 201905
